FAERS Safety Report 8434828-8 (Version None)
Quarter: 2012Q2

REPORT INFORMATION
  Report Type: 
  Country: None (occurrence: None)
  Receive Date: 20120614
  Receipt Date: 20120605
  Transmission Date: 20120825
  Serious: Yes (Hospitalization)
  Sender: FDA-Public Use
  Company Number: US-JNJFOC-20120520882

PATIENT
  Sex: Male
  Weight: 120.2 kg

DRUGS (4)
  1. SIMVASTATIN [Concomitant]
     Indication: BLOOD CHOLESTEROL
     Route: 048
  2. XARELTO [Suspect]
     Indication: ATRIAL FIBRILLATION
     Route: 048
     Dates: start: 20120515, end: 20120525
  3. PERCOCET [Suspect]
     Indication: PAIN
     Dosage: DOSE 5/325 MG
     Route: 048
     Dates: start: 20120528, end: 20120529
  4. FLECAINIDE ACETATE [Concomitant]
     Indication: ATRIAL FIBRILLATION
     Route: 048

REACTIONS (6)
  - PAIN [None]
  - MALAISE [None]
  - DISCOMFORT [None]
  - INAPPROPRIATE SCHEDULE OF DRUG ADMINISTRATION [None]
  - ASTHENIA [None]
  - PENILE HAEMORRHAGE [None]
